FAERS Safety Report 6316453-8 (Version None)
Quarter: 2009Q3

REPORT INFORMATION
  Report Type: 
  Country: None (occurrence: None)
  Receive Date: 20090819
  Receipt Date: 20090819
  Transmission Date: 20100115
  Serious: No
  Sender: FDA-Public Use
  Company Number: None

PATIENT
  Age: 46 Year
  Sex: Female
  Weight: 63.5036 kg

DRUGS (1)
  1. CYMBALTA [Suspect]
     Indication: ANXIETY
     Dosage: 15MG  1 DAILY PO
     Route: 048
     Dates: start: 20041001, end: 20090818

REACTIONS (7)
  - ACNE [None]
  - AFFECTIVE DISORDER [None]
  - DRUG WITHDRAWAL SYNDROME [None]
  - EYE ROLLING [None]
  - FATIGUE [None]
  - SENSORY DISTURBANCE [None]
  - WEIGHT INCREASED [None]
